FAERS Safety Report 9001823 (Version 5)
Quarter: 2014Q1

REPORT INFORMATION
  Report Type: Spontaneous
  Country: GB (occurrence: GB)
  Receive Date: 20130107
  Receipt Date: 20140206
  Transmission Date: 20141002
  Serious: Yes (Hospitalization)
  Sender: FDA-Public Use
  Company Number: GB-TEVA-378330ISR

PATIENT
  Age: 67 Year
  Sex: Female

DRUGS (14)
  1. LANSOPRAZOLE [Suspect]
     Dosage: 30 MILLIGRAM DAILY; IN THE MORNING
     Route: 048
  2. TRIMETHOPRIM [Suspect]
     Indication: URINARY TRACT INFECTION
     Dosage: 1000 MILLIGRAM DAILY;
     Route: 048
     Dates: start: 20110416, end: 20110423
  3. TRIMETHOPRIM [Suspect]
     Dosage: 1000 MILLIGRAM DAILY;
     Route: 048
     Dates: start: 20110317, end: 20110321
  4. CIPROFLOXACIN [Suspect]
     Dosage: 1000 MILLIGRAM DAILY;
     Route: 048
     Dates: start: 20110401, end: 20110408
  5. CLARITHROMYCIN [Suspect]
     Dosage: 1000 MILLIGRAM DAILY;
     Route: 048
     Dates: end: 20101102
  6. DOXYCYCLINE [Suspect]
     Dosage: 100 MILLIGRAM DAILY;
     Route: 048
     Dates: end: 20110502
  7. BUMETANIDE [Concomitant]
     Dosage: 2 MILLIGRAM DAILY;
     Route: 048
  8. AMLODIPINE [Concomitant]
     Dosage: 10 MILLIGRAM DAILY;
     Route: 048
  9. ASPIRIN [Concomitant]
     Dosage: 75 MILLIGRAM DAILY;
     Route: 048
  10. ATORVASTATIN [Concomitant]
     Dosage: 80 MILLIGRAM DAILY;
     Route: 048
  11. BENDROFLUMETHIAZIDE [Concomitant]
     Dosage: 2.5 MILLIGRAM DAILY;
     Route: 048
  12. IRBESARTAN [Concomitant]
     Dosage: 150 MILLIGRAM DAILY;
     Route: 048
  13. PARACETAMOL [Concomitant]
     Dosage: FOUR TIMES A DAY AS NECESSARY
  14. SALBUTAMOL [Concomitant]
     Dosage: PUFFS AS REQUIRED
     Route: 055

REACTIONS (2)
  - Clostridium difficile infection [Recovered/Resolved]
  - Diarrhoea [Unknown]
